FAERS Safety Report 15120513 (Version 1)
Quarter: 2018Q3

REPORT INFORMATION
  Report Type: Spontaneous
  Country: DE (occurrence: DE)
  Receive Date: 20180709
  Receipt Date: 20180709
  Transmission Date: 20181010
  Serious: Yes (Hospitalization)
  Sender: FDA-Public Use
  Company Number: PHHY2018DE036982

PATIENT
  Age: 33 Year
  Sex: Female

DRUGS (1)
  1. ETANERCEPT [Suspect]
     Active Substance: ETANERCEPT
     Indication: PRODUCT USED FOR UNKNOWN INDICATION
     Dosage: INJECTION / INFUSION LOSUNG
     Route: 058

REACTIONS (5)
  - Skin test positive [Unknown]
  - Rash [Unknown]
  - Administration site discomfort [Unknown]
  - Throat tightness [Unknown]
  - Injection site hypersensitivity [Unknown]
